FAERS Safety Report 7298717-7 (Version None)
Quarter: 2011Q1

REPORT INFORMATION
  Report Type: 
  Country: None (occurrence: None)
  Receive Date: 20110217
  Receipt Date: 20110214
  Transmission Date: 20110831
  Serious: Yes (Hospitalization)
  Sender: FDA-Public Use
  Company Number: FR-PFIZER INC-2011031886

PATIENT
  Age: 58 Year
  Sex: Female

DRUGS (7)
  1. EFFEXOR XR [Suspect]
     Dosage: 75 MG, 3X/DAY
     Route: 048
     Dates: start: 20101203
  2. ABILIFY [Interacting]
     Dosage: 10 MG, 1X/DAY
     Route: 048
  3. STILNOX [Interacting]
     Indication: SLEEP DISORDER
     Dosage: 10 MG, 1X/DAY
     Route: 048
     Dates: start: 20110106, end: 20110110
  4. FORLAX [Concomitant]
     Dosage: UNK
     Route: 048
  5. CAPTOPRIL [Concomitant]
     Dosage: UNK
     Route: 048
  6. TENORMIN [Concomitant]
     Dosage: UNK
     Route: 048
  7. ELISOR [Concomitant]
     Dosage: UNK
     Route: 048

REACTIONS (5)
  - HALLUCINATION [None]
  - DRUG INTERACTION [None]
  - ANXIETY [None]
  - AMNESIA [None]
  - HYPERHIDROSIS [None]
